FAERS Safety Report 7644336-X (Version None)
Quarter: 2011Q3

REPORT INFORMATION
  Report Type: 
  Country: None (occurrence: None)
  Receive Date: 20110729
  Receipt Date: 20110719
  Transmission Date: 20111222
  Serious: Yes (Hospitalization)
  Sender: FDA-Public Use
  Company Number: US-ELI_LILLY_AND_COMPANY-US201107003367

PATIENT
  Sex: Female
  Weight: 80.272 kg

DRUGS (11)
  1. SYNTHROID [Concomitant]
     Indication: THYROID DISORDER
     Dosage: UNK
     Route: 048
  2. CALCIUM CARBONATE [Concomitant]
     Indication: MINERAL SUPPLEMENTATION
     Dosage: UNK
     Route: 048
  3. XANAX [Concomitant]
     Indication: ANXIETY
     Dosage: UNK, EACH EVENING
     Route: 048
  4. DIURETICS [Concomitant]
     Indication: POLYURIA
     Dosage: 25 MG, QD
     Route: 048
  5. WARFARIN SODIUM [Concomitant]
     Dosage: 1 MG, 2/W
  6. BYETTA [Suspect]
     Indication: TYPE 2 DIABETES MELLITUS
     Dosage: 5 UG, BID
     Route: 058
     Dates: start: 20110712
  7. SIMVASTATIN [Concomitant]
     Indication: BLOOD CHOLESTEROL
     Dosage: UNK
     Route: 048
  8. NORVASC [Concomitant]
     Indication: HYPERTENSION
     Dosage: 5 MG, BID
     Route: 048
  9. LEVEMIR [Concomitant]
     Indication: TYPE 2 DIABETES MELLITUS
     Dosage: 18 U, EACH EVENING
     Route: 058
  10. GLUCOPHAGE [Concomitant]
     Indication: TYPE 2 DIABETES MELLITUS
     Dosage: 1000 MG, BID
     Route: 048
  11. WARFARIN SODIUM [Concomitant]
     Dosage: 2 MG, 5/W
     Route: 048

REACTIONS (7)
  - DIARRHOEA [None]
  - TRANSIENT ISCHAEMIC ATTACK [None]
  - OFF LABEL USE [None]
  - MENTAL STATUS CHANGES [None]
  - VOMITING [None]
  - NAUSEA [None]
  - MEMORY IMPAIRMENT [None]
